FAERS Safety Report 26045749 (Version 1)
Quarter: 2025Q4

REPORT INFORMATION
  Report Type: Spontaneous
  Country: EU (occurrence: EU)
  Receive Date: 20251114
  Receipt Date: 20251114
  Transmission Date: 20260117
  Serious: Yes (Other)
  Sender: MYLAN
  Company Number: None

PATIENT
  Age: 53 Year
  Sex: Female

DRUGS (20)
  1. PACLITAXEL [Suspect]
     Active Substance: PACLITAXEL
     Indication: Triple negative breast cancer
     Dosage: 1 DOSAGE FORM, CYCLE (ASSOCIATION WITH KEYTRUDA)
     Dates: start: 20220706
  2. PACLITAXEL [Suspect]
     Active Substance: PACLITAXEL
     Dosage: 1 DOSAGE FORM, CYCLE (ASSOCIATION WITH KEYTRUDA)
     Route: 065
     Dates: start: 20220706
  3. PACLITAXEL [Suspect]
     Active Substance: PACLITAXEL
     Dosage: 1 DOSAGE FORM, CYCLE (ASSOCIATION WITH KEYTRUDA)
     Route: 065
     Dates: start: 20220706
  4. PACLITAXEL [Suspect]
     Active Substance: PACLITAXEL
     Dosage: 1 DOSAGE FORM, CYCLE (ASSOCIATION WITH KEYTRUDA)
     Dates: start: 20220706
  5. CARBOPLATIN [Suspect]
     Active Substance: CARBOPLATIN
     Indication: Triple negative breast cancer
     Dosage: 1 DOSAGE FORM, CYCLE (ASSOCIATION AVEC KEYTRUDA)
     Dates: start: 20220706
  6. CARBOPLATIN [Suspect]
     Active Substance: CARBOPLATIN
     Dosage: 1 DOSAGE FORM, CYCLE (ASSOCIATION AVEC KEYTRUDA)
     Route: 065
     Dates: start: 20220706
  7. CARBOPLATIN [Suspect]
     Active Substance: CARBOPLATIN
     Dosage: 1 DOSAGE FORM, CYCLE (ASSOCIATION AVEC KEYTRUDA)
     Route: 065
     Dates: start: 20220706
  8. CARBOPLATIN [Suspect]
     Active Substance: CARBOPLATIN
     Dosage: 1 DOSAGE FORM, CYCLE (ASSOCIATION AVEC KEYTRUDA)
     Dates: start: 20220706
  9. EPIRUBICIN [Suspect]
     Active Substance: EPIRUBICIN
     Indication: Triple negative breast cancer
     Dosage: 1 DOSAGE FORM, CYCLE (ASSOCIATION AVEC KEYTRUDA)
     Dates: start: 20220929
  10. EPIRUBICIN [Suspect]
     Active Substance: EPIRUBICIN
     Dosage: 1 DOSAGE FORM, CYCLE (ASSOCIATION AVEC KEYTRUDA)
     Route: 065
     Dates: start: 20220929
  11. EPIRUBICIN [Suspect]
     Active Substance: EPIRUBICIN
     Dosage: 1 DOSAGE FORM, CYCLE (ASSOCIATION AVEC KEYTRUDA)
     Route: 065
     Dates: start: 20220929
  12. EPIRUBICIN [Suspect]
     Active Substance: EPIRUBICIN
     Dosage: 1 DOSAGE FORM, CYCLE (ASSOCIATION AVEC KEYTRUDA)
     Dates: start: 20220929
  13. CYCLOPHOSPHAMIDE [Suspect]
     Active Substance: CYCLOPHOSPHAMIDE
     Indication: Triple negative breast cancer
     Dosage: 1 DOSAGE FORM, CYCLE (ASSOCIATION AVEC KEYTRUDA)
     Dates: start: 20220929
  14. CYCLOPHOSPHAMIDE [Suspect]
     Active Substance: CYCLOPHOSPHAMIDE
     Dosage: 1 DOSAGE FORM, CYCLE (ASSOCIATION AVEC KEYTRUDA)
     Route: 065
     Dates: start: 20220929
  15. CYCLOPHOSPHAMIDE [Suspect]
     Active Substance: CYCLOPHOSPHAMIDE
     Dosage: 1 DOSAGE FORM, CYCLE (ASSOCIATION AVEC KEYTRUDA)
     Route: 065
     Dates: start: 20220929
  16. CYCLOPHOSPHAMIDE [Suspect]
     Active Substance: CYCLOPHOSPHAMIDE
     Dosage: 1 DOSAGE FORM, CYCLE (ASSOCIATION AVEC KEYTRUDA)
     Dates: start: 20220929
  17. KEYTRUDA [Suspect]
     Active Substance: PEMBROLIZUMAB
     Indication: Triple negative breast cancer
     Dosage: 200 MILLIGRAM, CYCLE
     Dates: start: 20220706
  18. KEYTRUDA [Suspect]
     Active Substance: PEMBROLIZUMAB
     Dosage: 200 MILLIGRAM, CYCLE
     Route: 042
     Dates: start: 20220706
  19. KEYTRUDA [Suspect]
     Active Substance: PEMBROLIZUMAB
     Dosage: 200 MILLIGRAM, CYCLE
     Route: 042
     Dates: start: 20220706
  20. KEYTRUDA [Suspect]
     Active Substance: PEMBROLIZUMAB
     Dosage: 200 MILLIGRAM, CYCLE
     Dates: start: 20220706

REACTIONS (9)
  - Neuropathy peripheral [Recovering/Resolving]
  - Neutropenia [Recovering/Resolving]
  - Thrombocytopenia [Recovering/Resolving]
  - Dysaesthesia [Recovering/Resolving]
  - Dermatitis allergic [Recovering/Resolving]
  - Gastrointestinal disorder [Recovering/Resolving]
  - Asthenia [Recovering/Resolving]
  - Anaemia [Not Recovered/Not Resolved]
  - Nausea [Not Recovered/Not Resolved]

NARRATIVE: CASE EVENT DATE: 20220701
